FAERS Safety Report 8348879-5 (Version None)
Quarter: 2012Q2

REPORT INFORMATION
  Report Type: 
  Country: None (occurrence: None)
  Receive Date: 20120508
  Receipt Date: 20120424
  Transmission Date: 20120825
  Serious: Yes (Hospitalization)
  Sender: FDA-Public Use
  Company Number: JPI-P-021107

PATIENT
  Age: 73 Year
  Sex: Male

DRUGS (2)
  1. XYREM [Suspect]
     Indication: SLEEP DISORDER
     Dosage: 4.5;6 GM (2.25;3GM, 2 IN 1 D), ORAL
     Route: 048
     Dates: start: 20100505
  2. XYREM [Suspect]
     Indication: SLEEP DISORDER
     Dosage: 4.5;6 GM (2.25;3GM, 2 IN 1 D), ORAL
     Route: 048
     Dates: start: 20100419

REACTIONS (1)
  - PULMONARY THROMBOSIS [None]
